FAERS Safety Report 5028067-0 (Version None)
Quarter: 2006Q2

REPORT INFORMATION
  Report Type: 
  Country: None (occurrence: None)
  Receive Date: 20060501
  Receipt Date: 20060206
  Transmission Date: 20061013
  Serious: No
  Sender: FDA-Public Use
  Company Number: 200611310US

PATIENT
  Sex: Female

DRUGS (3)
  1. KETEK [Suspect]
     Indication: PHARYNGOLARYNGEAL PAIN
     Dosage: 800 MG QD PO
     Route: 048
     Dates: start: 20060130, end: 20060201
  2. KETEK [Suspect]
     Indication: STREPTOCOCCAL INFECTION
     Dosage: 800 MG QD PO
     Route: 048
     Dates: start: 20060130, end: 20060201
  3. KETEK [Suspect]
     Indication: UPPER RESPIRATORY TRACT INFECTION
     Dosage: 800 MG QD PO
     Route: 048
     Dates: start: 20060130, end: 20060201

REACTIONS (4)
  - CHROMATURIA [None]
  - CULTURE URINE POSITIVE [None]
  - MUSCLE SPASMS [None]
  - URINARY TRACT INFECTION [None]
